FAERS Safety Report 12280994 (Version 4)
Quarter: 2016Q2

REPORT INFORMATION
  Report Type: Spontaneous
  Country: US (occurrence: US)
  Receive Date: 20160419
  Receipt Date: 20160608
  Transmission Date: 20160815
  Serious: Yes (Hospitalization, Other)
  Sender: FDA-Public Use
  Company Number: US-JNJFOC-20160408762

PATIENT
  Age: 77 Year
  Sex: Female

DRUGS (14)
  1. LEVOTHYROXINE. [Concomitant]
     Active Substance: LEVOTHYROXINE
     Route: 048
  2. ZESTRIL [Concomitant]
     Active Substance: LISINOPRIL
     Route: 048
  3. PROTONIX [Concomitant]
     Active Substance: PANTOPRAZOLE SODIUM
     Route: 048
  4. PREDNISONE. [Concomitant]
     Active Substance: PREDNISONE
     Route: 048
  5. BISOPROLOL [Concomitant]
     Active Substance: BISOPROLOL
     Route: 048
  6. AMIODARONE [Concomitant]
     Active Substance: AMIODARONE
     Route: 048
  7. LASIX [Concomitant]
     Active Substance: FUROSEMIDE
     Route: 048
  8. PRAVACHOL [Concomitant]
     Active Substance: PRAVASTATIN SODIUM
     Route: 048
  9. K-DUR [Concomitant]
     Active Substance: POTASSIUM CHLORIDE
     Route: 048
  10. XARELTO [Suspect]
     Active Substance: RIVAROXABAN
     Indication: CEREBROVASCULAR ACCIDENT PROPHYLAXIS
     Route: 048
  11. ULTRAM [Suspect]
     Active Substance: TRAMADOL HYDROCHLORIDE
     Indication: PRODUCT USED FOR UNKNOWN INDICATION
     Route: 048
  12. COLACE [Concomitant]
     Active Substance: DOCUSATE SODIUM
     Route: 048
  13. XARELTO [Suspect]
     Active Substance: RIVAROXABAN
     Indication: ATRIAL FIBRILLATION
     Route: 048
  14. DESLORATADINE. [Concomitant]
     Active Substance: DESLORATADINE
     Route: 048

REACTIONS (19)
  - Renal impairment [Unknown]
  - Decubitus ulcer [Unknown]
  - Stent placement [Unknown]
  - International normalised ratio increased [Unknown]
  - Coronary artery disease [Unknown]
  - Cellulitis [Unknown]
  - Cardiac imaging procedure abnormal [Unknown]
  - Peptic ulcer [Unknown]
  - Implant site reaction [Unknown]
  - Skin ulcer [Unknown]
  - Gastrointestinal haemorrhage [Unknown]
  - Colitis [Unknown]
  - Rheumatoid arthritis [Unknown]
  - Intervertebral disc degeneration [Unknown]
  - Breakthrough pain [Unknown]
  - Abscess [Unknown]
  - Spinal compression fracture [Unknown]
  - Hypoaesthesia [Unknown]
  - Hypothyroidism [Unknown]

NARRATIVE: CASE EVENT DATE: 20160118
